FAERS Safety Report 6454535-0 (Version None)
Quarter: 2009Q4

REPORT INFORMATION
  Report Type: 
  Country: None (occurrence: None)
  Receive Date: 20091118
  Receipt Date: 20091102
  Transmission Date: 20100525
  Serious: Yes (Other)
  Sender: FDA-Public Use
  Company Number: 1-20602397

PATIENT
  Age: 34 Year

DRUGS (5)
  1. LAMOTRIGINE [Suspect]
     Indication: PARTIAL SEIZURES
     Dosage: 200 MG TWICE DAILY
  2. LORAZEPAM [Concomitant]
  3. LEVOTHYROXINE SODIUM [Concomitant]
  4. CYCLOSPORINE [Concomitant]
  5. POLYGAM [Concomitant]

REACTIONS (6)
  - ANXIETY [None]
  - IRRITABILITY [None]
  - MENTAL DISORDER [None]
  - PSYCHOMOTOR HYPERACTIVITY [None]
  - TACHYPHRENIA [None]
  - WITHDRAWAL SYNDROME [None]
